FAERS Safety Report 26120203 (Version 3)
Quarter: 2025Q4

REPORT INFORMATION
  Report Type: Spontaneous
  Country: EU (occurrence: EU)
  Receive Date: 20251204
  Receipt Date: 20251221
  Transmission Date: 20260118
  Serious: Yes (Other)
  Sender: AUROBINDO
  Company Number: EU-AUROBINDO-AUR-APL-2025-061396

PATIENT
  Age: 72 Year
  Sex: Male
  Weight: 100 kg

DRUGS (2)
  1. FINASTERIDE [Suspect]
     Active Substance: FINASTERIDE
     Indication: Prostate cancer
     Dosage: 1 DOSAGE FORM, EVERY MORNING
     Route: 061
  2. Tamsublock? [Concomitant]
     Indication: Prostate cancer
     Dosage: 1 DOSAGE FORM, AT BED TIME (INTAKE:1X DAILY IN THE EVENING (PRESCRIBED 1X DAILY IN THE MORNING)
     Route: 061

REACTIONS (13)
  - Suicidal ideation [Recovering/Resolving]
  - Depressed mood [Recovering/Resolving]
  - Depression suicidal [Recovering/Resolving]
  - Erectile dysfunction [Not Recovered/Not Resolved]
  - Restlessness [Not Recovered/Not Resolved]
  - Apathy [Not Recovered/Not Resolved]
  - Cystitis noninfective [Recovering/Resolving]
  - Chromaturia [Recovering/Resolving]
  - Testicular swelling [Recovering/Resolving]
  - Tremor [Not Recovered/Not Resolved]
  - Pain [Recovered/Resolved]
  - Ejaculation disorder [Not Recovered/Not Resolved]
  - Urine abnormality [Not Recovered/Not Resolved]

NARRATIVE: CASE EVENT DATE: 20250101
